FAERS Safety Report 8959841 (Version 1)
Quarter: 2012Q4

REPORT INFORMATION
  Report Type: 
  Country: US (occurrence: US)
  Receive Date: 20121212
  Receipt Date: 20121212
  Transmission Date: 20130627
  Serious: No
  Sender: FDA-Public Use
  Company Number: US-TEVA-321927USA

PATIENT

DRUGS (1)
  1. BUDESONIDE [Suspect]
     Dosage: 0.25 mg/2 mL
     Route: 055

REACTIONS (3)
  - Insomnia [Unknown]
  - Crying [Unknown]
  - Drug effect incomplete [Unknown]
